FAERS Safety Report 6470910-2 (Version None)
Quarter: 2009Q4

REPORT INFORMATION
  Report Type: 
  Country: None (occurrence: None)
  Receive Date: 20091203
  Receipt Date: 20080114
  Transmission Date: 20100525
  Serious: Yes (Hospitalization)
  Sender: FDA-Public Use
  Company Number: US-ELI_LILLY_AND_COMPANY-US200801002540

PATIENT
  Age: 69 Year
  Sex: Female

DRUGS (6)
  1. BYETTA [Suspect]
     Indication: TYPE 2 DIABETES MELLITUS
     Dosage: 10 UG, UNK
     Route: 058
  2. METOPROLOL /00376902/ [Concomitant]
  3. PLAVIX [Concomitant]
  4. LYRICA [Concomitant]
  5. FLEXERIL [Concomitant]
  6. LORTAB [Concomitant]

REACTIONS (1)
  - CEREBROVASCULAR ACCIDENT [None]
